FAERS Safety Report 5682709-5 (Version None)
Quarter: 2008Q1

REPORT INFORMATION
  Report Type: 
  Country: None (occurrence: None)
  Receive Date: 20080327
  Receipt Date: 20080317
  Transmission Date: 20080703
  Serious: Yes (Hospitalization)
  Sender: FDA-Public Use
  Company Number: FR-AMGEN-US251923

PATIENT
  Sex: Male
  Weight: 60 kg

DRUGS (2)
  1. ENBREL [Suspect]
     Indication: RHEUMATOID ARTHRITIS
     Route: 058
     Dates: start: 20070301, end: 20071030
  2. CORTANCYL [Concomitant]
     Route: 048

REACTIONS (3)
  - INFLAMMATION [None]
  - PYREXIA [None]
  - THROMBOCYTOPENIA [None]
